FAERS Safety Report 14689782 (Version 1)
Quarter: 2018Q1

REPORT INFORMATION
  Report Type: Spontaneous
  Country: US (occurrence: US)
  Receive Date: 20180327
  Receipt Date: 20180327
  Transmission Date: 20180509
  Serious: No
  Sender: FDA-Public Use
  Company Number: None

PATIENT
  Age: 82 Year
  Sex: Female

DRUGS (18)
  1. IBRANCE [Suspect]
     Active Substance: PALBOCICLIB
     Indication: BREAST CANCER
     Route: 048
     Dates: start: 20170821
  2. IBRANCE [Suspect]
     Active Substance: PALBOCICLIB
     Indication: BONE CANCER
     Route: 048
     Dates: start: 20170821
  3. NORTRIPTYLINE HC [Concomitant]
  4. MAGNESIUM [Concomitant]
     Active Substance: MAGNESIUM
  5. XGEVA [Concomitant]
     Active Substance: DENOSUMAB
  6. COUMADIN [Concomitant]
     Active Substance: WARFARIN SODIUM
  7. DILT-XR [Concomitant]
     Active Substance: DILTIAZEM
  8. METOPROLOL TARTRATE. [Concomitant]
     Active Substance: METOPROLOL TARTRATE
  9. CLONAZEPAM. [Concomitant]
     Active Substance: CLONAZEPAM
  10. ROPINIROLE HCL [Concomitant]
     Active Substance: ROPINIROLE HYDROCHLORIDE
  11. NITRO-DUR [Concomitant]
     Active Substance: NITROGLYCERIN
  12. NITROSTAT [Concomitant]
     Active Substance: NITROGLYCERIN
  13. EXEMESTANE. [Concomitant]
     Active Substance: EXEMESTANE
  14. FUROSEMIDE. [Concomitant]
     Active Substance: FUROSEMIDE
  15. VITAMIN D3 COMPLETE [Concomitant]
  16. ALLOPURINOL. [Concomitant]
     Active Substance: ALLOPURINOL
  17. CELEBREX [Concomitant]
     Active Substance: CELECOXIB
  18. ECOTRIN [Concomitant]
     Active Substance: ASPIRIN

REACTIONS (4)
  - Dry skin [None]
  - Alopecia [None]
  - Skin fissures [None]
  - Madarosis [None]

NARRATIVE: CASE EVENT DATE: 20180228
